FAERS Safety Report 5694840-9 (Version None)
Quarter: 2008Q2

REPORT INFORMATION
  Report Type: 
  Country: None (occurrence: None)
  Receive Date: 20080404
  Receipt Date: 20080327
  Transmission Date: 20081010
  Serious: Yes (Death)
  Sender: FDA-Public Use
  Company Number: GB-AVENTIS-200810459GDDC

PATIENT
  Age: 80 Year

DRUGS (5)
  1. LEFLUNOMIDE [Suspect]
     Route: 048
     Dates: start: 20070301, end: 20070923
  2. GABAPENTIN [Concomitant]
     Dosage: DOSE: UNK
  3. LANSOPRAZOLE [Concomitant]
     Dosage: DOSE: UNK
  4. PREDNISOLONE [Concomitant]
     Indication: RHEUMATOID ARTHRITIS
  5. TRAMADOL HCL [Concomitant]
     Indication: PAIN

REACTIONS (2)
  - DEATH [None]
  - INTERSTITIAL LUNG DISEASE [None]
